FAERS Safety Report 6815757-X (Version None)
Quarter: 2010Q3

REPORT INFORMATION
  Report Type: 
  Country: None (occurrence: None)
  Receive Date: 20100703
  Receipt Date: 20100623
  Transmission Date: 20110219
  Serious: Yes (Other)
  Sender: FDA-Public Use
  Company Number: JP-MERCK-1006USA04222B1

PATIENT
  Age: 24 Week
  Sex: Male

DRUGS (7)
  1. PRIMAXIN [Suspect]
     Indication: INFLAMMATION
     Route: 064
  2. LABETALOL HYDROCHLORIDE [Concomitant]
     Indication: HYPERTENSION
     Route: 064
  3. CEFTAZIDIME [Concomitant]
     Indication: INFLAMMATION
     Route: 064
  4. NIFEDIPINE [Concomitant]
     Indication: HYPERTENSION
     Route: 064
  5. BETAMETHASONE [Concomitant]
     Route: 064
  6. ALBUMINAR [Concomitant]
     Indication: HYPOPROTEINAEMIA
     Route: 064
  7. [COMPOSITION UNSPECIFIED] [Concomitant]
     Indication: PATENT DUCTUS ARTERIOSUS
     Route: 065

REACTIONS (5)
  - FOETAL GROWTH RESTRICTION [None]
  - PATENT DUCTUS ARTERIOSUS [None]
  - PREMATURE BABY [None]
  - RETINOPATHY OF PREMATURITY [None]
  - SMALL FOR DATES BABY [None]
